FAERS Safety Report 12517012 (Version 3)
Quarter: 2016Q3

REPORT INFORMATION
  Report Type: Report from Study
  Country: US (occurrence: US)
  Receive Date: 20160630
  Receipt Date: 20160805
  Transmission Date: 20161109
  Serious: Yes (Life-Threatening, Hospitalization)
  Sender: FDA-Public Use
  Company Number: US-ACTELION-A-NJ2016-138271

PATIENT
  Age: 47 Year
  Sex: Female

DRUGS (1)
  1. OPSUMIT [Suspect]
     Active Substance: MACITENTAN
     Indication: PULMONARY ARTERIAL HYPERTENSION
     Dosage: 10 MG, QD
     Route: 048
     Dates: start: 20150626

REACTIONS (11)
  - Streptococcal bacteraemia [Unknown]
  - Dyspnoea [Recovering/Resolving]
  - Pneumonia [Recovering/Resolving]
  - Pulmonary hypertension [Recovered/Resolved]
  - Blood glucose increased [Unknown]
  - Hepatic congestion [Unknown]
  - Liver function test increased [Unknown]
  - Pericardial effusion [Recovering/Resolving]
  - Diet noncompliance [Recovered/Resolved]
  - Dehydration [Unknown]
  - Fluid overload [Recovered/Resolved]
